FAERS Safety Report 20151949 (Version 1)
Quarter: 2021Q4

REPORT INFORMATION
  Report Type: Spontaneous
  Country: US (occurrence: US)
  Receive Date: 20211206
  Receipt Date: 20211206
  Transmission Date: 20220303
  Serious: Yes (Other)
  Sender: FDA-Public Use
  Company Number: US-PFIZER INC-202101641228

PATIENT

DRUGS (2)
  1. SKELAXIN [Suspect]
     Active Substance: METAXALONE
     Indication: Muscle disorder
  2. METAXALONE [Suspect]
     Active Substance: METAXALONE
     Indication: Muscle disorder

REACTIONS (2)
  - Muscle rupture [Unknown]
  - Fall [Unknown]
